FAERS Safety Report 6241644-4 (Version None)
Quarter: 2009Q2

REPORT INFORMATION
  Report Type: 
  Country: None (occurrence: None)
  Receive Date: 20090623
  Receipt Date: 20061025
  Transmission Date: 20091009
  Serious: Yes (Hospitalization, Other)
  Sender: FDA-Public Use
  Company Number: AU-ROCHE-468538

PATIENT
  Sex: Male

DRUGS (24)
  1. DACLIZUMAB [Suspect]
     Dosage: BASELINE VISIT
     Route: 042
     Dates: start: 20040516, end: 20040516
  2. DACLIZUMAB [Suspect]
     Dosage: WEEK 2, 4, 6 AND 8 VISIT
     Route: 042
     Dates: start: 20040531
  3. MYCOPHENOLATE MOFETIL [Suspect]
     Route: 048
     Dates: start: 20040516
  4. MYCOPHENOLATE MOFETIL [Suspect]
     Route: 048
     Dates: start: 20040517
  5. SIROLIMUS [Suspect]
     Route: 048
     Dates: start: 20040517, end: 20040908
  6. TACROLIMUS [Suspect]
     Route: 048
     Dates: start: 20060828
  7. PREDNISONE [Suspect]
     Route: 048
     Dates: start: 20040519
  8. PREDNISONE [Suspect]
     Route: 048
     Dates: start: 20040810
  9. PREDNISONE [Suspect]
     Route: 048
     Dates: start: 20051108
  10. METHYLPREDNISOLONE [Suspect]
     Route: 042
     Dates: start: 20040516, end: 20040519
  11. METHYLPREDNISOLONE [Suspect]
     Route: 042
     Dates: start: 20040526, end: 20040608
  12. CYCLOSPORINE [Suspect]
     Route: 048
     Dates: start: 20040908
  13. CYCLOSPORINE [Suspect]
     Route: 048
     Dates: start: 20050803, end: 20060827
  14. ACTRAPID [Concomitant]
     Route: 058
     Dates: start: 20040517
  15. ATENOLOL [Concomitant]
     Route: 048
     Dates: start: 20040522, end: 20040601
  16. ATORVASTATIN CALCIUM [Concomitant]
     Route: 048
     Dates: start: 20040528, end: 20040827
  17. BACTRIM [Concomitant]
     Dates: start: 20040816
  18. BACTRIM [Concomitant]
     Dates: start: 20040916
  19. EZETROL [Concomitant]
     Route: 048
     Dates: start: 20050615
  20. FELODIPINE [Concomitant]
     Route: 048
     Dates: start: 20040517, end: 20040603
  21. IRBESARTAN [Concomitant]
     Route: 048
     Dates: start: 20030101, end: 20040603
  22. VALACYCLOVIR HCL [Concomitant]
     Dosage: ROUTE: ORAL
     Route: 050
     Dates: start: 20040517
  23. VALACYCLOVIR HCL [Concomitant]
     Dosage: ROUTE: ORAL
     Route: 050
     Dates: start: 20040520
  24. VALACYCLOVIR HCL [Concomitant]
     Dosage: ROUTE: PR
     Route: 050
     Dates: start: 20040522

REACTIONS (2)
  - BASAL CELL CARCINOMA [None]
  - GASTROENTERITIS [None]
